FAERS Safety Report 9952751 (Version 1)
Quarter: 2014Q1

REPORT INFORMATION
  Report Type: Spontaneous
  Country: US (occurrence: US)
  Receive Date: 20140304
  Receipt Date: 20140304
  Transmission Date: 20141002
  Serious: No
  Sender: FDA-Public Use
  Company Number: US-AMGEN-USASP2014002637

PATIENT
  Age: 54 Year
  Sex: Female
  Weight: 106.5 kg

DRUGS (4)
  1. ENBREL [Suspect]
     Indication: PRODUCT USED FOR UNKNOWN INDICATION
     Dosage: 50 MG, QWK
     Route: 058
  2. LIVOLA [Concomitant]
     Dosage: 2 MG, UNK
  3. VASCEPA [Concomitant]
     Dosage: 1 G, UNK
  4. VITAMIN D3 [Concomitant]
     Dosage: 10000 UNIT, UNK

REACTIONS (2)
  - Blood cholesterol increased [Unknown]
  - Blood triglycerides increased [Unknown]
